FAERS Safety Report 18137952 (Version 2)
Quarter: 2020Q3

REPORT INFORMATION
  Report Type: Spontaneous
  Country: JP (occurrence: JP)
  Receive Date: 20200812
  Receipt Date: 20200829
  Transmission Date: 20201103
  Serious: Yes (Other)
  Sender: FDA-Public Use
  Company Number: JP-AMGEN-JPNSP2020127765

PATIENT
  Age: 82 Year
  Sex: Female
  Weight: 43.9 kg

DRUGS (10)
  1. NESP [Concomitant]
     Active Substance: DARBEPOETIN ALFA
     Dosage: 20 MICROGRAM, QWK
     Route: 065
     Dates: start: 20191009, end: 20200214
  2. FESIN [SACCHARATED IRON OXIDE] [Concomitant]
     Active Substance: IRON SUCROSE
     Dosage: 40 MILLIGRAM, QWK
     Route: 042
     Dates: start: 20191122, end: 20200124
  3. ROCALTROL [Concomitant]
     Active Substance: CALCITRIOL
     Dosage: 0.5 MICROGRAM, QWK
     Route: 065
     Dates: start: 20190515, end: 20191028
  4. CALCITRIOL. [Concomitant]
     Active Substance: CALCITRIOL
     Dosage: 0.5 MICROGRAM, 3 TIMES/WK
     Route: 042
     Dates: start: 20200413
  5. PARSABIV [Suspect]
     Active Substance: ETELCALCETIDE HYDROCHLORIDE
     Indication: HYPERPARATHYROIDISM SECONDARY
     Dosage: 2.5 MG, Q56H
     Route: 010
     Dates: start: 20190902
  6. NESP [Concomitant]
     Active Substance: DARBEPOETIN ALFA
     Dosage: 10 MICROGRAM, QWK
     Route: 065
     Dates: start: 20190823, end: 20191008
  7. NESP [Concomitant]
     Active Substance: DARBEPOETIN ALFA
     Dosage: 10 MICROGRAM, QWK
     Route: 065
     Dates: start: 20200221
  8. CALCITRIOL. [Concomitant]
     Active Substance: CALCITRIOL
     Dosage: 0.5 MICROGRAM, 2 TIMES/WK
     Route: 042
     Dates: start: 20200113, end: 20200410
  9. CALCITRIOL. [Concomitant]
     Active Substance: CALCITRIOL
     Dosage: 0.5 MICROGRAM, QWK
     Route: 042
     Dates: start: 20191104, end: 20200110
  10. FOSRENOL [Concomitant]
     Active Substance: LANTHANUM CARBONATE
     Dosage: 1500 MILLIGRAM, QD
     Route: 048

REACTIONS (1)
  - Retinal artery occlusion [Recovering/Resolving]

NARRATIVE: CASE EVENT DATE: 20200228
